FAERS Safety Report 17102263 (Version 2)
Quarter: 2020Q1

REPORT INFORMATION
  Report Type: Spontaneous
  Country: RS (occurrence: RS)
  Receive Date: 20191202
  Receipt Date: 20200106
  Transmission Date: 20200409
  Serious: Yes (Other)
  Sender: FDA-Public Use
  Company Number: RS-JNJFOC-20191134470

PATIENT
  Age: 60 Year
  Sex: Female

DRUGS (3)
  1. DUROGESIC [Suspect]
     Active Substance: FENTANYL
     Route: 062
  2. DUROGESIC [Suspect]
     Active Substance: FENTANYL
     Route: 062
  3. DUROGESIC [Suspect]
     Active Substance: FENTANYL
     Indication: PAIN
     Route: 062

REACTIONS (7)
  - Weight decreased [Unknown]
  - Haematemesis [Unknown]
  - Hallucination [Unknown]
  - Melaena [Unknown]
  - Speech disorder [Unknown]
  - Body temperature fluctuation [Unknown]
  - Product complaint [Unknown]
